FAERS Safety Report 7134210-X (Version None)
Quarter: 2010Q4

REPORT INFORMATION
  Report Type: 
  Country: None (occurrence: None)
  Receive Date: 20101203
  Receipt Date: 20101124
  Transmission Date: 20110411
  Serious: Yes (Other)
  Sender: FDA-Public Use
  Company Number: US-AMGEN-QUU417383

PATIENT

DRUGS (4)
  1. NPLATE [Suspect]
     Indication: IDIOPATHIC THROMBOCYTOPENIC PURPURA
     Dosage: 1 A?G/KG, QWK
     Route: 058
     Dates: start: 20100601
  2. NPLATE [Suspect]
     Dosage: 1 A?G/KG, UNK
     Route: 058
     Dates: start: 20100608
  3. NPLATE [Suspect]
     Dosage: 2 A?G/KG, UNK
     Route: 058
     Dates: start: 20100615
  4. NPLATE [Suspect]
     Dosage: UNK
     Dates: start: 20100622

REACTIONS (2)
  - HYPOAESTHESIA ORAL [None]
  - PARAESTHESIA ORAL [None]
